FAERS Safety Report 20675486 (Version 1)
Quarter: 2022Q2

REPORT INFORMATION
  Report Type: Spontaneous
  Country: US (occurrence: None)
  Receive Date: 20220404
  Receipt Date: 20220404
  Transmission Date: 20220721
  Serious: Yes (Death)
  Sender: FDA-Public Use
  Company Number: None

PATIENT
  Sex: Male

DRUGS (12)
  1. PYRIMETHAMINE [Suspect]
     Active Substance: PYRIMETHAMINE
     Indication: Toxoplasmosis
     Dosage: FREQUENCY : DAILY;?
     Route: 048
     Dates: start: 20200429
  2. ABACAVIR [Concomitant]
     Active Substance: ABACAVIR
  3. ALPRAZOLAM [Concomitant]
     Active Substance: ALPRAZOLAM
  4. ATOVAQUONE SUS [Concomitant]
  5. DARAPRIM [Concomitant]
     Active Substance: PYRIMETHAMINE
  6. FUZEON SUSP [Concomitant]
  7. HYDROMROPHON [Concomitant]
  8. LEUCOVOR CA [Concomitant]
  9. METHENAM MAN [Concomitant]
  10. NORVIR [Concomitant]
     Active Substance: RITONAVIR
  11. PREZISTA SUS [Concomitant]
  12. TIVICAY [Concomitant]
     Active Substance: DOLUTEGRAVIR SODIUM

REACTIONS (1)
  - Death [None]
